FAERS Safety Report 14646130 (Version 1)
Quarter: 2018Q1

REPORT INFORMATION
  Report Type: Spontaneous
  Country: US (occurrence: US)
  Receive Date: 20180316
  Receipt Date: 20180316
  Transmission Date: 20180509
  Serious: Yes (Other)
  Sender: FDA-Public Use
  Company Number: US-WEST-WARD PHARMACEUTICALS CORP.-US-H14001-18-01797

PATIENT
  Age: 47 Year
  Sex: Female

DRUGS (7)
  1. VERAPAMIL [Concomitant]
     Active Substance: VERAPAMIL HYDROCHLORIDE
     Indication: UTERINE LEIOMYOMA EMBOLISATION
     Route: 013
  2. GLYCERYL TRINITRATE [Concomitant]
     Active Substance: NITROGLYCERIN
     Indication: UTERINE LEIOMYOMA EMBOLISATION
     Dosage: AN ADDITIONAL 200 ?G NITROGLYCERIN WAS ADMINISTERED VIA THE RADIAL ACCESS.
     Route: 013
  3. GLYCERYL TRINITRATE [Concomitant]
     Active Substance: NITROGLYCERIN
     Indication: UTERINE LEIOMYOMA EMBOLISATION
     Route: 013
  4. HEPARIN [Concomitant]
     Active Substance: HEPARIN SODIUM
     Indication: UTERINE LEIOMYOMA EMBOLISATION
     Route: 013
  5. SOLU-MEDROL [Concomitant]
     Active Substance: METHYLPREDNISOLONE SODIUM SUCCINATE
     Indication: PRODUCT USED FOR UNKNOWN INDICATION
     Route: 042
  6. LIDOCAINE. [Concomitant]
     Active Substance: LIDOCAINE
     Indication: ANAESTHESIA
     Route: 065
  7. SODIUM CHLORIDE. [Suspect]
     Active Substance: SODIUM CHLORIDE
     Indication: UTERINE LEIOMYOMA EMBOLISATION
     Dosage: ()
     Route: 041

REACTIONS (3)
  - Incorrect drug administration rate [Recovered/Resolved]
  - Skin necrosis [Recovered/Resolved]
  - Pallor [Recovered/Resolved]
